FAERS Safety Report 4503498-3 (Version None)
Quarter: 2004Q4

REPORT INFORMATION
  Report Type: 
  Country: None (occurrence: None)
  Receive Date: 20041115
  Receipt Date: 20041102
  Transmission Date: 20050328
  Serious: Yes (Hospitalization)
  Sender: FDA-Public Use
  Company Number: 2004CG02216

PATIENT
  Age: 39 Year
  Sex: Female

DRUGS (4)
  1. ZOMIG [Suspect]
     Indication: MIGRAINE
     Dosage: 2.5 MG MONTH PO
     Route: 048
     Dates: end: 20011001
  2. ZOMIG [Suspect]
     Indication: MIGRAINE
     Dosage: 5 MG WEEK PO
     Route: 048
     Dates: start: 20031001
  3. TEGRETOL [Concomitant]
  4. KEPPRA [Concomitant]

REACTIONS (8)
  - ANGIONEUROTIC OEDEMA [None]
  - ARTHRALGIA [None]
  - BLOOD CREATINE PHOSPHOKINASE INCREASED [None]
  - DERMATITIS ALLERGIC [None]
  - DYSPNOEA [None]
  - EOSINOPHILIA [None]
  - FACE OEDEMA [None]
  - TRICHINIASIS [None]
